FAERS Safety Report 12750590 (Version 1)
Quarter: 2016Q3

REPORT INFORMATION
  Report Type: Spontaneous
  Country: US (occurrence: US)
  Receive Date: 20160916
  Receipt Date: 20160916
  Transmission Date: 20161109
  Serious: No
  Sender: FDA-Public Use
  Company Number: US-JNJFOC-20160528644

PATIENT
  Age: 70 Year
  Sex: Male
  Weight: 87.09 kg

DRUGS (4)
  1. AXERT [Suspect]
     Active Substance: ALMOTRIPTAN MALATE
     Indication: MIGRAINE
     Dosage: 15 TO 20 YEARS AGO
     Route: 048
     Dates: start: 1999
  2. TRANXENE T-TAB [Concomitant]
     Active Substance: CLORAZEPATE DIPOTASSIUM
     Indication: PRODUCT USED FOR UNKNOWN INDICATION
     Route: 048
     Dates: start: 1980
  3. NORCO [Concomitant]
     Active Substance: ACETAMINOPHEN\HYDROCODONE BITARTRATE
     Indication: PAIN
     Route: 048
     Dates: start: 1980
  4. AVELOX [Concomitant]
     Active Substance: MOXIFLOXACIN HYDROCHLORIDE
     Indication: LOCALISED INFECTION
     Route: 048
     Dates: start: 201604

REACTIONS (6)
  - Fistula [Recovered/Resolved]
  - Prostate cancer [Recovered/Resolved]
  - Localised infection [Not Recovered/Not Resolved]
  - Bladder cancer [Recovered/Resolved]
  - Expired product administered [Recovered/Resolved]
  - Subcutaneous abscess [Recovered/Resolved]

NARRATIVE: CASE EVENT DATE: 201512
